FAERS Safety Report 14966824 (Version 1)
Quarter: 2018Q2

REPORT INFORMATION
  Report Type: Spontaneous
  Country: MX (occurrence: MX)
  Receive Date: 20180604
  Receipt Date: 20180604
  Transmission Date: 20180711
  Serious: No
  Sender: FDA-Public Use
  Company Number: MX-CHEPLA-1923195

PATIENT
  Age: 23 Year
  Sex: Female
  Weight: 70 kg

DRUGS (3)
  1. ORLISTAT. [Suspect]
     Active Substance: ORLISTAT
     Indication: IRRITABLE BOWEL SYNDROME
     Route: 048
     Dates: start: 201703, end: 20170414
  2. TRIMEBUTINE [Concomitant]
     Active Substance: TRIMEBUTINE
     Indication: IRRITABLE BOWEL SYNDROME
     Route: 048
     Dates: start: 201703, end: 20170414
  3. PANTOPRAZOLE [Concomitant]
     Active Substance: PANTOPRAZOLE
     Indication: IRRITABLE BOWEL SYNDROME
     Route: 048
     Dates: start: 201703, end: 20170414

REACTIONS (2)
  - Product use in unapproved indication [Recovered/Resolved]
  - Menstruation irregular [Not Recovered/Not Resolved]

NARRATIVE: CASE EVENT DATE: 201703
